FAERS Safety Report 19680845 (Version 1)
Quarter: 2021Q3

REPORT INFORMATION
  Report Type: Spontaneous
  Country: DE (occurrence: DE)
  Receive Date: 20210810
  Receipt Date: 20210810
  Transmission Date: 20211014
  Serious: Yes (Hospitalization)
  Sender: FDA-Public Use
  Company Number: NVSC2021DE176710

PATIENT
  Age: 70 Year
  Sex: Male
  Weight: 90 kg

DRUGS (46)
  1. DEXAMETHASONE. [Suspect]
     Active Substance: DEXAMETHASONE
     Indication: BRAIN OEDEMA
     Dosage: 12 MG, QD
     Route: 031
     Dates: start: 20170828, end: 20170831
  2. DEXAMETHASONE. [Suspect]
     Active Substance: DEXAMETHASONE
     Indication: PROCEDURAL HEADACHE
     Dosage: 8 MG, QD
     Route: 031
     Dates: start: 20170901, end: 20170903
  3. DEXAMETHASONE. [Suspect]
     Active Substance: DEXAMETHASONE
     Dosage: 1 MG, BID (EVERY 0.5 DAY)
     Route: 031
     Dates: start: 20180409, end: 20180515
  4. COBIMETINIB. [Suspect]
     Active Substance: COBIMETINIB
     Dosage: 60 MG, QD
     Route: 048
     Dates: start: 20170831, end: 20170903
  5. COBIMETINIB. [Suspect]
     Active Substance: COBIMETINIB
     Dosage: 60 MG, QD
     Route: 048
     Dates: start: 20170904, end: 20180423
  6. COBIMETINIB. [Suspect]
     Active Substance: COBIMETINIB
     Dosage: 40 MG, QD
     Route: 048
     Dates: start: 20180424, end: 20180514
  7. VEMURAFENIB. [Suspect]
     Active Substance: VEMURAFENIB
     Dosage: 720 MG, BID (EVERY 0.5 DAY)
     Route: 048
     Dates: start: 20170907, end: 20180619
  8. VIMPAT [Concomitant]
     Active Substance: LACOSAMIDE
     Indication: PROPHYLAXIS
     Dosage: 100 MG, BID (EVERY 0.5 DAY)
     Route: 048
     Dates: start: 20190426
  9. VOMEX A [Concomitant]
     Active Substance: DIMENHYDRINATE
     Indication: PROPHYLAXIS OF NAUSEA AND VOMITING
  10. MOVICOL [Concomitant]
     Active Substance: POLYETHYLENE GLYCOL 3350\POTASSIUM CHLORIDE\SODIUM BICARBONATE\SODIUM CHLORIDE
     Indication: PROPHYLAXIS
     Dosage: 1381 MG, QD
     Route: 048
     Dates: start: 20190421, end: 20190507
  11. RAMIPRIL. [Concomitant]
     Active Substance: RAMIPRIL
     Indication: VASCULAR GRAFT
  12. SIMVASTATIN. [Concomitant]
     Active Substance: SIMVASTATIN
     Indication: HYPERTENSION
  13. DEXAMETHASONE. [Suspect]
     Active Substance: DEXAMETHASONE
     Dosage: 1 MG, QD
     Route: 031
     Dates: start: 20180516, end: 20180603
  14. DEXAMETHASONE. [Suspect]
     Active Substance: DEXAMETHASONE
     Dosage: 0.5 MG (EVERY 0.33 DAY)
     Route: 031
     Dates: start: 20180724, end: 20180806
  15. DEXAMETHASONE. [Suspect]
     Active Substance: DEXAMETHASONE
     Dosage: 0.5 MG, BID (EVERY 0.5 DAY)
     Route: 031
     Dates: start: 20180807, end: 20180820
  16. VEMURAFENIB. [Suspect]
     Active Substance: VEMURAFENIB
     Dosage: 480 MG, BID (EVERY 0.5 DAY)
     Route: 048
     Dates: start: 20170827, end: 20170828
  17. VEMURAFENIB. [Suspect]
     Active Substance: VEMURAFENIB
     Dosage: 480 MG, BID (EVERY 0.5 DAY)
     Route: 048
     Dates: start: 20170831, end: 20170903
  18. ACETYLSALICYLIC ACID [Concomitant]
     Active Substance: ASPIRIN
     Indication: HYPERTENSION
     Dosage: 100 MG, QD
     Route: 048
     Dates: start: 20140501
  19. FOLVERLAN [Concomitant]
     Active Substance: FOLIC ACID
     Indication: PROPHYLAXIS
     Dosage: 5 MG, QD
     Route: 048
     Dates: start: 20181022, end: 20181203
  20. PANTOPRAZOLE [Concomitant]
     Active Substance: PANTOPRAZOLE
     Indication: PROPHYLAXIS
     Dosage: 40 MG, QD
     Route: 048
     Dates: start: 20170201
  21. VOMEX A [Concomitant]
     Active Substance: DIMENHYDRINATE
     Indication: PAIN
     Dosage: 50 MG (EVERY 0.33 DAY)
     Route: 048
     Dates: start: 20180620
  22. COBIMETINIB. [Suspect]
     Active Substance: COBIMETINIB
     Indication: METASTATIC MALIGNANT MELANOMA
     Dosage: 60 MG, QD
     Route: 048
     Dates: start: 20170823, end: 20170828
  23. VEMURAFENIB. [Suspect]
     Active Substance: VEMURAFENIB
     Dosage: 960 MG, BID (EVERY 0.5 DAY)
     Route: 048
     Dates: start: 20180823
  24. ASPIRIN. [Concomitant]
     Active Substance: ASPIRIN
     Indication: HYPERTENSION
     Dosage: UNK
     Route: 048
  25. DEXAMETHASONE. [Suspect]
     Active Substance: DEXAMETHASONE
     Indication: PROCEDURAL NAUSEA
     Dosage: 1 MG, QD (EVERY 1 DAY)
     Route: 031
     Dates: start: 20170929
  26. DEXAMETHASONE. [Suspect]
     Active Substance: DEXAMETHASONE
     Indication: VISION BLURRED
     Dosage: 4 MG, QD
     Route: 031
     Dates: start: 20180124, end: 20180220
  27. DEXAMETHASONE. [Suspect]
     Active Substance: DEXAMETHASONE
     Dosage: 0.5 MG, BID (EVERY 0.5 DAY)
     Route: 031
     Dates: start: 20180604, end: 20180606
  28. DEXAMETHASONE. [Suspect]
     Active Substance: DEXAMETHASONE
     Dosage: 0.5 MG (EVERY 0.12 DAY)
     Route: 031
     Dates: start: 20180607, end: 20180611
  29. VEMURAFENIB. [Suspect]
     Active Substance: VEMURAFENIB
     Indication: METASTATIC MALIGNANT MELANOMA
     Dosage: 960 MG, BID (EVERY 0.5 DAY)
     Route: 048
     Dates: start: 20170823, end: 20170826
  30. MONO?EMBOLEX [Concomitant]
     Active Substance: CERTOPARIN SODIUM
     Indication: PROPHYLAXIS
     Dosage: 3000 IU, QD
     Route: 058
     Dates: start: 20170131, end: 20180716
  31. SIMVASTATIN. [Concomitant]
     Active Substance: SIMVASTATIN
     Indication: VASCULAR GRAFT
     Dosage: 30 MG, QD
     Route: 048
     Dates: start: 20150501, end: 20181023
  32. DEXAMETHASONE. [Suspect]
     Active Substance: DEXAMETHASONE
     Indication: PROCEDURAL VOMITING
     Dosage: 4 MG, QD
     Route: 031
     Dates: start: 20170904, end: 20170921
  33. DEXAMETHASONE. [Suspect]
     Active Substance: DEXAMETHASONE
     Indication: SEROUS RETINOPATHY
     Dosage: 1 MG (EVERY 0.2 DAY)
     Route: 031
     Dates: start: 20170929
  34. VEMURAFENIB. [Suspect]
     Active Substance: VEMURAFENIB
     Dosage: 720 MG, BID (EVERY 0.5 DAY)
     Route: 048
     Dates: start: 20170904, end: 20170906
  35. ACETYLSALICYLIC ACID [Concomitant]
     Active Substance: ASPIRIN
     Indication: VASCULAR GRAFT
  36. RAMIPRIL. [Concomitant]
     Active Substance: RAMIPRIL
     Indication: HYPERTENSION
     Dosage: 5 MG, QD
     Route: 048
     Dates: start: 20140501
  37. DEXAMETHASONE. [Suspect]
     Active Substance: DEXAMETHASONE
     Indication: METASTASES TO CENTRAL NERVOUS SYSTEM
     Dosage: 2 MG, QD (EVERY 1 DAY)
     Route: 031
     Dates: start: 20170922, end: 20180123
  38. DEXAMETHASONE. [Suspect]
     Active Substance: DEXAMETHASONE
     Dosage: 0.5 MG (EVERY 0.16 DAY)
     Route: 031
     Dates: start: 20180612, end: 20180709
  39. DEXAMETHASONE. [Suspect]
     Active Substance: DEXAMETHASONE
     Dosage: 0.5 MG (EVERY 0.25 DAY)
     Route: 031
     Dates: start: 20180710, end: 20180723
  40. COBIMETINIB. [Suspect]
     Active Substance: COBIMETINIB
     Dosage: 40 MG, QD
     Route: 048
     Dates: start: 20171113, end: 20180423
  41. FERRO SANOL [Concomitant]
     Active Substance: FERROUS GLYCINE SULFATE
     Indication: PRODUCT USED FOR UNKNOWN INDICATION
     Dosage: 100 MG, QD
     Route: 048
     Dates: start: 20181022, end: 20181203
  42. METOPROLOL. [Concomitant]
     Active Substance: METOPROLOL
     Indication: HYPERTENSION
  43. ASPIRIN. [Concomitant]
     Active Substance: ASPIRIN
     Indication: VASCULAR GRAFT
  44. LEVETIRACETAM. [Concomitant]
     Active Substance: LEVETIRACETAM
     Indication: MALIGNANT MELANOMA
     Dosage: 120 MG, Q12H
     Route: 048
  45. LEVETIRACETAM. [Concomitant]
     Active Substance: LEVETIRACETAM
     Indication: METASTASES TO CENTRAL NERVOUS SYSTEM
  46. METOPROLOL. [Concomitant]
     Active Substance: METOPROLOL
     Indication: VASCULAR GRAFT
     Dosage: 95 MG, Q12H
     Route: 048
     Dates: start: 20140501

REACTIONS (1)
  - Gastroenteritis viral [Recovered/Resolved]

NARRATIVE: CASE EVENT DATE: 20181026
